FAERS Safety Report 6880240-2 (Version None)
Quarter: 2010Q3

REPORT INFORMATION
  Report Type: 
  Country: None (occurrence: None)
  Receive Date: 20100728
  Receipt Date: 20100715
  Transmission Date: 20110219
  Serious: Yes (Other)
  Sender: FDA-Public Use
  Company Number: JP-PFIZER INC-2010084908

PATIENT
  Age: 78 Year
  Sex: Female

DRUGS (5)
  1. SALAZOPYRIN [Suspect]
     Indication: COLITIS ULCERATIVE
     Dosage: 4 G, UNK
     Route: 048
  2. RINDERON [Concomitant]
     Dosage: UNK
  3. IMURAN [Concomitant]
     Dosage: UNK
  4. FOLIC ACID [Concomitant]
     Dosage: UNK
  5. WARFARIN [Concomitant]
     Dosage: UNK

REACTIONS (3)
  - ANAEMIA [None]
  - CONSTIPATION [None]
  - INTESTINAL OBSTRUCTION [None]
